FAERS Safety Report 6134609-4 (Version None)
Quarter: 2009Q1

REPORT INFORMATION
  Report Type: 
  Country: None (occurrence: None)
  Receive Date: 20090327
  Receipt Date: 20090316
  Transmission Date: 20090719
  Serious: Yes (Other)
  Sender: FDA-Public Use
  Company Number: GB-JNJFOC-20090304090

PATIENT
  Sex: Female
  Weight: 44 kg

DRUGS (3)
  1. REMICADE [Suspect]
     Indication: CROHN'S DISEASE
     Dosage: 12TH INFUSION
     Route: 042
  2. HYDROCORTISONE [Concomitant]
     Indication: PREMEDICATION
  3. PRITON [Concomitant]
     Indication: PREMEDICATION

REACTIONS (8)
  - DIZZINESS [None]
  - FLUSHING [None]
  - HEADACHE [None]
  - HEART RATE INCREASED [None]
  - HYPOTENSION [None]
  - INFUSION RELATED REACTION [None]
  - PYREXIA [None]
  - WHEEZING [None]
